FAERS Safety Report 16522631 (Version 3)
Quarter: 2020Q1

REPORT INFORMATION
  Report Type: Report from Study
  Country: CA (occurrence: CA)
  Receive Date: 20190702
  Receipt Date: 20200203
  Transmission Date: 20200409
  Serious: Yes (Other)
  Sender: FDA-Public Use
  Company Number: CA-GLAXOSMITHKLINE-CA2019AMR112670

PATIENT
  Sex: Male

DRUGS (2)
  1. MEPOLIZUMAB [Suspect]
     Active Substance: MEPOLIZUMAB
     Indication: ASTHMA
     Dosage: 100 MG, Z
     Route: 042
     Dates: start: 20190606
  2. MEPOLIZUMAB [Suspect]
     Active Substance: MEPOLIZUMAB
     Dosage: 100 MG, Z (MONHLY)
     Route: 042
     Dates: start: 20200102

REACTIONS (12)
  - Nervousness [Recovering/Resolving]
  - Hyperhidrosis [Recovering/Resolving]
  - Insomnia [Recovering/Resolving]
  - Product dose omission [Unknown]
  - Eosinophilic granulomatosis with polyangiitis [Unknown]
  - Hypertension [Unknown]
  - Feeling abnormal [Unknown]
  - Fatigue [Unknown]
  - Angina pectoris [Unknown]
  - Headache [Recovering/Resolving]
  - Pain [Unknown]
  - Tremor [Unknown]
